FAERS Safety Report 26208419 (Version 1)
Quarter: 2025Q4

REPORT INFORMATION
  Report Type: Spontaneous
  Country: US (occurrence: None)
  Receive Date: 20251226
  Receipt Date: 20251226
  Transmission Date: 20260117
  Serious: Yes (Hospitalization)
  Sender: FDA-CTU
  Company Number: None

PATIENT
  Age: 3 Year
  Sex: Male
  Weight: 12.6 kg

DRUGS (4)
  1. CARBOPLATIN [Suspect]
     Active Substance: CARBOPLATIN
     Dates: end: 20250705
  2. ETOPOSIDE [Suspect]
     Active Substance: ETOPOSIDE
     Dates: end: 20250705
  3. MELPHALAN [Suspect]
     Active Substance: MELPHALAN
     Dates: end: 20250720
  4. NEULASTA [Suspect]
     Active Substance: PEGFILGRASTIM
     Dates: end: 20250720

REACTIONS (2)
  - Mucosal inflammation [None]
  - Leptotrichia infection [None]

NARRATIVE: CASE EVENT DATE: 20250730
